FAERS Safety Report 6154480-4 (Version None)
Quarter: 2009Q2

REPORT INFORMATION
  Report Type: 
  Country: None (occurrence: None)
  Receive Date: 20090414
  Receipt Date: 20090407
  Transmission Date: 20091009
  Serious: Yes (Hospitalization, Other)
  Sender: FDA-Public Use
  Company Number: CA-ELI_LILLY_AND_COMPANY-CA200902007424

PATIENT
  Sex: Male

DRUGS (2)
  1. HUMALOG [Suspect]
     Indication: DIABETES MELLITUS
     Dosage: 5 U, EACH MORNING
     Route: 058
  2. LANTUS [Concomitant]
     Dosage: 22 U, EACH MORNING

REACTIONS (2)
  - ACCIDENT AT WORK [None]
  - HYPOGLYCAEMIC COMA [None]
